FAERS Safety Report 9692191 (Version 2)
Quarter: 2014Q1

REPORT INFORMATION
  Report Type: Spontaneous
  Country: US (occurrence: US)
  Receive Date: 20131118
  Receipt Date: 20140115
  Transmission Date: 20141002
  Serious: Yes (Hospitalization)
  Sender: FDA-Public Use
  Company Number: US-009507513-1311USA004277

PATIENT
  Age: 23 Year
  Sex: Female

DRUGS (2)
  1. NEXPLANON [Suspect]
     Indication: CONTRACEPTION
     Dosage: UNK
     Route: 059
     Dates: start: 20131017, end: 20131104
  2. IMPLANON [Suspect]
     Dosage: UNK
     Route: 059
     Dates: end: 20131017

REACTIONS (1)
  - Collagen-vascular disease [Not Recovered/Not Resolved]
